FAERS Safety Report 6095212-8 (Version None)
Quarter: 2009Q1

REPORT INFORMATION
  Report Type: 
  Country: None (occurrence: None)
  Receive Date: 20090227
  Receipt Date: 20080221
  Transmission Date: 20090719
  Serious: No
  Sender: FDA-Public Use
  Company Number: A0709381A

PATIENT
  Age: 66 Year
  Sex: Female

DRUGS (4)
  1. LAMICTAL [Suspect]
     Indication: BIPOLAR II DISORDER
     Route: 048
     Dates: start: 20050101
  2. CELEXA [Concomitant]
  3. AMBIEN [Concomitant]
  4. ALCOHOL [Concomitant]

REACTIONS (7)
  - DRY SKIN [None]
  - DYSGEUSIA [None]
  - LETHARGY [None]
  - PRURITUS [None]
  - RASH [None]
  - THERAPEUTIC RESPONSE UNEXPECTED [None]
  - WEIGHT INCREASED [None]
